FAERS Safety Report 16304669 (Version 3)
Quarter: 2019Q3

REPORT INFORMATION
  Report Type: Spontaneous
  Country: US (occurrence: US)
  Receive Date: 20190513
  Receipt Date: 20190716
  Transmission Date: 20191004
  Serious: No
  Sender: FDA-Public Use
  Company Number: US-PFIZER INC-2019200299

PATIENT
  Age: 63 Year
  Sex: Female
  Weight: 65.32 kg

DRUGS (2)
  1. LATANOPROST. [Suspect]
     Active Substance: LATANOPROST
     Indication: OPEN ANGLE GLAUCOMA
     Dosage: 0.005 %, 1X/DAY (AT BED TIME)
     Dates: start: 20180115, end: 20190501
  2. LATANOPROST. [Suspect]
     Active Substance: LATANOPROST
     Dosage: 2.5 ML, DAILY
     Dates: start: 20190521, end: 20190702

REACTIONS (2)
  - Drug ineffective [Unknown]
  - Rash macular [Not Recovered/Not Resolved]

NARRATIVE: CASE EVENT DATE: 201810
